FAERS Safety Report 11788619 (Version 1)
Quarter: 2015Q4

REPORT INFORMATION
  Report Type: Report from Study
  Country: CA (occurrence: CA)
  Receive Date: 20151201
  Receipt Date: 20151201
  Transmission Date: 20160305
  Serious: Yes (Hospitalization, Other)
  Sender: FDA-Public Use
  Company Number: CA-AMGEN-CANSL2015127112

PATIENT
  Age: 72 Year

DRUGS (1)
  1. ENBREL [Suspect]
     Active Substance: ETANERCEPT
     Indication: PSORIASIS
     Dosage: UNK UNK, UNK
     Route: 065
     Dates: start: 20140602

REACTIONS (5)
  - Lung infection [Unknown]
  - Bronchitis [Unknown]
  - Breast cancer [Unknown]
  - Pneumonia [Unknown]
  - Infection [Unknown]
